FAERS Safety Report 4410629-2 (Version None)
Quarter: 2004Q3

REPORT INFORMATION
  Report Type: 
  Country: None (occurrence: None)
  Receive Date: 20040728
  Receipt Date: 20040728
  Transmission Date: 20050211
  Serious: Yes (Hospitalization, Disabling)
  Sender: FDA-Public Use
  Company Number: None

PATIENT
  Age: 42 Year
  Sex: Male
  Weight: 77.1115 kg

DRUGS (9)
  1. ZYPREXA [Suspect]
     Indication: BIPOLAR DISORDER
     Dosage: 10 MG UP TO 20 MG
     Dates: start: 20000331, end: 20000525
  2. DEPAKOTE [Concomitant]
  3. TEGRETOL [Concomitant]
  4. ALLOPURINOL [Concomitant]
  5. FOSINOPRIL SODIUM [Concomitant]
  6. ASPIRIN [Concomitant]
  7. SYNTHROID [Concomitant]
  8. PROPRANOLOL [Concomitant]
  9. FELODINE [Concomitant]

REACTIONS (2)
  - BLOOD GLUCOSE INCREASED [None]
  - COMA [None]
